FAERS Safety Report 8180084 (Version 2)
Quarter: 2012Q4

REPORT INFORMATION
  Report Type: 
  Country: US (occurrence: US)
  Receive Date: 20111013
  Receipt Date: 20121212
  Transmission Date: 20130627
  Serious: Yes (Other)
  Sender: FDA-Public Use
  Company Number: US-US-EMD SERONO, INC.-7087566

PATIENT
  Sex: Female
  Weight: 43 kg

DRUGS (2)
  1. REBIF [Suspect]
     Indication: MULTIPLE SCLEROSIS
     Route: 058
     Dates: start: 20090430, end: 201101
  2. REBIF [Suspect]
     Route: 058
     Dates: start: 201102, end: 201102

REACTIONS (4)
  - Oculopharyngeal dystrophy [Not Recovered/Not Resolved]
  - Influenza [Unknown]
  - Injection site reaction [Unknown]
  - Injection site pain [Unknown]
